FAERS Safety Report 8064459-3 (Version None)
Quarter: 2012Q1

REPORT INFORMATION
  Report Type: 
  Country: None (occurrence: None)
  Receive Date: 20120123
  Receipt Date: 20120120
  Transmission Date: 20120608
  Serious: Yes (Death)
  Sender: FDA-Public Use
  Company Number: PHHY2012DE003424

PATIENT
  Sex: Male
  Weight: 133 kg

DRUGS (8)
  1. ZOMETA [Suspect]
     Indication: BONE DISORDER
     Dosage: 4 MG, UNK
     Route: 042
     Dates: start: 20110726
  2. SANDOSTATIN LAR [Concomitant]
     Dosage: 30 MG/ MONTH
     Dates: start: 20110414
  3. MCP DROP [Concomitant]
  4. EVEROLIMUS [Concomitant]
     Dosage: 5 MG/ DAY
     Dates: start: 20110808
  5. ZOMETA [Suspect]
     Dosage: 4 MG, UNK
     Route: 042
     Dates: start: 20111025
  6. BENALAPRIL PLUS [Concomitant]
  7. ESCITALOPRAM [Concomitant]
     Dosage: 10 MG/ DAY
     Dates: start: 20110901
  8. TORSEMIDE [Concomitant]
     Dosage: 100 MG,/ DAY

REACTIONS (2)
  - NEOPLASM PROGRESSION [None]
  - NEOPLASM MALIGNANT [None]
